FAERS Safety Report 5898992-7 (Version None)
Quarter: 2008Q3

REPORT INFORMATION
  Report Type: 
  Country: None (occurrence: None)
  Receive Date: 20080925
  Receipt Date: 20080918
  Transmission Date: 20090109
  Serious: Yes (Other)
  Sender: FDA-Public Use
  Company Number: US-ABBOTT-08P-163-0477056-00

PATIENT
  Sex: Female
  Weight: 61.29 kg

DRUGS (1)
  1. LUPRON DEPOT [Suspect]
     Indication: MENOPAUSAL SYMPTOMS
     Route: 050
     Dates: start: 20080601, end: 20080811

REACTIONS (2)
  - ENDOMETRIAL ABLATION [None]
  - FLUSHING [None]
